FAERS Safety Report 23220535 (Version 2)
Quarter: 2023Q4

REPORT INFORMATION
  Report Type: Spontaneous
  Country: FR (occurrence: FR)
  Receive Date: 20231123
  Receipt Date: 20231204
  Transmission Date: 20240110
  Serious: Yes (Hospitalization, Other)
  Sender: FDA-Public Use
  Company Number: None

PATIENT
  Age: 67 Year
  Sex: Male
  Weight: 86 kg

DRUGS (4)
  1. METRONIDAZOLE [Suspect]
     Active Substance: METRONIDAZOLE
     Indication: Bacterial infection
     Dosage: 1500 MG, QD (DOSAGE TEXT: 500 MG X3/D)
     Route: 042
     Dates: start: 20231018, end: 20231020
  2. PIPERACILLIN AND TAZOBACTAM [Suspect]
     Active Substance: PIPERACILLIN SODIUM\TAZOBACTAM SODIUM
     Indication: Bacterial infection
     Dosage: (DOSAGE TEXT: 4G/500 MG EVERY 6 HRS) PIPERACILLIN TAZOBACTAM VIATRIS)
     Route: 042
     Dates: start: 20231015, end: 20231017
  3. CEFEPIME [Suspect]
     Active Substance: CEFEPIME HYDROCHLORIDE
     Indication: Bacterial infection
     Dosage: (DOSAGE TEXT: 6G/24HRS. THEN 4G/24HRS)
     Route: 042
     Dates: start: 20231017, end: 20231020
  4. LINEZOLID [Suspect]
     Active Substance: LINEZOLID
     Indication: Bacterial infection
     Dosage: 1200 MG, QD (DOSAGE TEXT: 600 MGX2/D)
     Route: 042
     Dates: start: 20231018, end: 20231019

REACTIONS (3)
  - Cholestasis [Recovering/Resolving]
  - Hepatic cytolysis [Recovering/Resolving]
  - Jaundice [Unknown]

NARRATIVE: CASE EVENT DATE: 20231021
